FAERS Safety Report 6860437-8 (Version None)
Quarter: 2010Q3

REPORT INFORMATION
  Report Type: 
  Country: None (occurrence: None)
  Receive Date: 20100715
  Receipt Date: 20100630
  Transmission Date: 20110219
  Serious: Yes (Life-Threatening, Other)
  Sender: FDA-Public Use
  Company Number: A-NJ2010-37334

PATIENT
  Age: 60 Year
  Sex: Female
  Weight: 102.9 kg

DRUGS (4)
  1. TRACLEER [Suspect]
     Indication: PULMONARY ARTERIAL HYPERTENSION
     Dosage: 125 MG, BID, ORAL; 62.5 MG, BID, ORAL
     Route: 048
     Dates: start: 20100428, end: 20100522
  2. TRACLEER [Suspect]
     Indication: PULMONARY ARTERIAL HYPERTENSION
     Dosage: 125 MG, BID, ORAL; 62.5 MG, BID, ORAL
     Route: 048
     Dates: start: 20100523, end: 20100610
  3. REVATIO [Concomitant]
  4. LASIX [Concomitant]

REACTIONS (3)
  - DYSPNOEA [None]
  - URINE OUTPUT DECREASED [None]
  - WHEEZING [None]
